FAERS Safety Report 9688620 (Version 2)
Quarter: 2013Q4

REPORT INFORMATION
  Report Type: Spontaneous
  Country: CA (occurrence: CA)
  Receive Date: 20131114
  Receipt Date: 20131203
  Transmission Date: 20140711
  Serious: Yes (Hospitalization, Other)
  Sender: FDA-Public Use
  Company Number: CA-AMGEN-CANSP2013080110

PATIENT
  Age: 64 Year
  Sex: Female

DRUGS (3)
  1. NEULASTA [Suspect]
     Indication: PRODUCT USED FOR UNKNOWN INDICATION
     Dosage: 10 MG/1.0 ML
     Route: 065
     Dates: start: 20130906
  2. NEUPOGEN [Suspect]
     Indication: PRODUCT USED FOR UNKNOWN INDICATION
     Dosage: UNK
     Route: 065
     Dates: end: 20131024
  3. CHEMOTHERAPEUTICS [Concomitant]
     Dosage: UNK

REACTIONS (2)
  - Pyrexia [Recovered/Resolved]
  - Febrile neutropenia [Unknown]
